FAERS Safety Report 9295884 (Version 1)
Quarter: 2013Q2

REPORT INFORMATION
  Report Type: Spontaneous
  Country: JP (occurrence: JP)
  Receive Date: 20130517
  Receipt Date: 20130517
  Transmission Date: 20140414
  Serious: Yes (Life-Threatening, Hospitalization, Other)
  Sender: FDA-Public Use
  Company Number: JP-GENZYME-THYM-1003808

PATIENT
  Age: 6 Year
  Sex: Male
  Weight: 16 kg

DRUGS (5)
  1. THYMOGLOBULINE [Suspect]
     Indication: MYELODYSPLASTIC SYNDROME
     Dosage: 64 MG, QD
     Route: 042
     Dates: start: 20130423, end: 20130427
  2. NEORAL [Concomitant]
     Indication: MYELODYSPLASTIC SYNDROME
     Dosage: 60 MG, BID
     Route: 048
     Dates: start: 20130423
  3. PREDONINE [Concomitant]
     Indication: PROPHYLAXIS
     Dosage: 5.7 MG, TID
     Route: 048
     Dates: start: 20130428
  4. GASTER [Concomitant]
     Indication: PROPHYLAXIS AGAINST GASTROINTESTINAL ULCER
     Dosage: 10 MG, QD
     Route: 048
     Dates: start: 20130428
  5. BAKTAR [Concomitant]
     Indication: ANTIFUNGAL PROPHYLAXIS
     Dosage: 0.35 G, BID
     Route: 048
     Dates: start: 20130427

REACTIONS (6)
  - Liver disorder [Recovered/Resolved]
  - Pleural effusion [Unknown]
  - Ascites [Unknown]
  - Renal failure [Unknown]
  - Serum sickness [Recovered/Resolved]
  - Off label use [Unknown]
